FAERS Safety Report 7495023-2 (Version None)
Quarter: 2011Q2

REPORT INFORMATION
  Report Type: 
  Country: None (occurrence: None)
  Receive Date: 20110520
  Receipt Date: 20110511
  Transmission Date: 20111010
  Serious: Yes (Hospitalization)
  Sender: FDA-Public Use
  Company Number: US-ELI_LILLY_AND_COMPANY-US201105003377

PATIENT

DRUGS (3)
  1. HUMALOG MIX 75/25 [Suspect]
     Indication: DIABETES MELLITUS
     Dosage: 15 U, BID
  2. METFORMIN HCL [Concomitant]
     Dosage: UNK
  3. ACTOS [Concomitant]

REACTIONS (1)
  - CHOLECYSTECTOMY [None]
